FAERS Safety Report 9852769 (Version 1)
Quarter: 2014Q1

REPORT INFORMATION
  Report Type: Spontaneous
  Country: US (occurrence: None)
  Receive Date: 20140128
  Receipt Date: 20140128
  Transmission Date: 20141002
  Serious: Yes (Life-Threatening, Hospitalization)
  Sender: FDA-Public Use
  Company Number: None

PATIENT
  Age: 13 Year
  Sex: Male
  Weight: 61.8 kg

DRUGS (2)
  1. LATUDA [Suspect]
     Route: 048
     Dates: start: 20140103, end: 20140108
  2. LAMOTRIGINE [Concomitant]

REACTIONS (9)
  - Blister [None]
  - Oropharyngeal pain [None]
  - Stevens-Johnson syndrome [None]
  - Toxic epidermal necrolysis [None]
  - Hyperthermia [None]
  - Serotonin syndrome [None]
  - Neuroleptic malignant syndrome [None]
  - Thymus disorder [None]
  - Hypernatraemia [None]
